FAERS Safety Report 11468384 (Version 2)
Quarter: 2015Q3

REPORT INFORMATION
  Report Type: Spontaneous
  Country: US (occurrence: US)
  Receive Date: 20150903
  Receipt Date: 20150903
  Transmission Date: 20151125
  Serious: No
  Sender: FDA-Public Use
  Company Number: US-ELI_LILLY_AND_COMPANY-US201108007796

PATIENT
  Age: 80 Year
  Sex: Male

DRUGS (2)
  1. CYMBALTA [Suspect]
     Active Substance: DULOXETINE HYDROCHLORIDE
     Indication: PAIN
     Dosage: 30 MG, UNK
     Dates: start: 20110817, end: 20110820
  2. TIAZAC [Concomitant]
     Active Substance: DILTIAZEM HYDROCHLORIDE
     Dosage: 180 MG, QD

REACTIONS (7)
  - Sluggishness [Unknown]
  - Pain in extremity [Unknown]
  - Asthenia [Unknown]
  - Sleep disorder [Unknown]
  - Chest pain [Unknown]
  - Feeling abnormal [Unknown]
  - Nervousness [Unknown]
